FAERS Safety Report 6301579-5 (Version None)
Quarter: 2009Q3

REPORT INFORMATION
  Report Type: 
  Country: None (occurrence: None)
  Receive Date: 20090807
  Receipt Date: 20090729
  Transmission Date: 20100115
  Serious: Yes (Hospitalization)
  Sender: FDA-Public Use
  Company Number: CH-ABBOTT-09P-151-0586733-00

PATIENT
  Age: 38 Year
  Sex: Male
  Weight: 77 kg

DRUGS (4)
  1. KLACID [Suspect]
     Indication: PNEUMONIA
     Dates: start: 20090420, end: 20090423
  2. ROCEPHIN [Concomitant]
     Indication: PNEUMONIA
     Dates: start: 20090420, end: 20090423
  3. NSIADS [Concomitant]
     Indication: SARCOIDOSIS
  4. PREDNISOLONE [Concomitant]
     Indication: SARCOIDOSIS
     Dosage: 20MG + 10MG AS DROPS
     Route: 048

REACTIONS (15)
  - AGGRESSION [None]
  - AGITATION [None]
  - APHTHOUS STOMATITIS [None]
  - C-REACTIVE PROTEIN INCREASED [None]
  - DISINHIBITION [None]
  - DRY MOUTH [None]
  - FATIGUE [None]
  - GENERAL PHYSICAL HEALTH DETERIORATION [None]
  - INSOMNIA [None]
  - LOGORRHOEA [None]
  - NERVOUSNESS [None]
  - PYREXIA [None]
  - STRESS [None]
  - TENSION [None]
  - THINKING ABNORMAL [None]
